FAERS Safety Report 7232832-9 (Version None)
Quarter: 2011Q1

REPORT INFORMATION
  Report Type: 
  Country: None (occurrence: None)
  Receive Date: 20110110
  Receipt Date: 20110103
  Transmission Date: 20110831
  Serious: Yes (Life-Threatening)
  Sender: FDA-Public Use
  Company Number: 2010TJ0160FU1

PATIENT
  Age: 39 Year
  Sex: Female

DRUGS (1)
  1. TWINJECT 0.15 [Suspect]
     Indication: HYPERSENSITIVITY
     Dosage: 0.3 MG, AS NEEDED
     Dates: start: 20101218, end: 20101218

REACTIONS (1)
  - DEVICE MALFUNCTION [None]
